FAERS Safety Report 8239163-9 (Version None)
Quarter: 2012Q1

REPORT INFORMATION
  Report Type: 
  Country: None (occurrence: None)
  Receive Date: 20120328
  Receipt Date: 20120320
  Transmission Date: 20120608
  Serious: Yes (Hospitalization, Other)
  Sender: FDA-Public Use
  Company Number: US-BIOGENIDEC-2009BI012522

PATIENT
  Sex: Female

DRUGS (3)
  1. AVONEX [Suspect]
     Route: 030
  2. AVONEX [Suspect]
     Route: 030
     Dates: start: 20030801, end: 20110501
  3. AVONEX [Suspect]
     Indication: MULTIPLE SCLEROSIS
     Route: 030
     Dates: start: 19961201, end: 20030701

REACTIONS (7)
  - PAIN [None]
  - SPINAL CORD DISORDER [None]
  - BACK PAIN [None]
  - BURNING SENSATION [None]
  - CYST [None]
  - HYPERTENSION [None]
  - ARTHRALGIA [None]
